FAERS Safety Report 8206803-X (Version None)
Quarter: 2012Q1

REPORT INFORMATION
  Report Type: 
  Country: None (occurrence: None)
  Receive Date: 20120308
  Receipt Date: 20120301
  Transmission Date: 20120608
  Serious: Yes (Hospitalization, Other)
  Sender: FDA-Public Use
  Company Number: 2011028973

PATIENT
  Age: 48 Year
  Sex: Female
  Weight: 70.7611 kg

DRUGS (24)
  1. HIZENTRA [Suspect]
  2. EXCEDRIN (EXCEDRIN /00214201/) () [Concomitant]
  3. HYDROCODONE BITARTRATE [Concomitant]
  4. PROTONIX [Concomitant]
  5. POTASSIUM CHLORIDE [Concomitant]
  6. HIZENTRA [Suspect]
  7. ALPRAZOLAM [Concomitant]
  8. FUROSEMIDE (FUROSEMIDE) () [Concomitant]
  9. WELLBUTRIN [Concomitant]
  10. MARINOL [Concomitant]
  11. HIZENTRA [Suspect]
     Indication: IMMUNODEFICIENCY
     Dosage: (11 G 1X/WEEK, INFUSED IN 4-5 SITES OVER 1-2 HOURS SUBCUTANEOUS), (SUBCUTANEOUS) , (SUBCUTANEOUS), (
     Route: 058
     Dates: start: 20101101
  12. HIZENTRA [Suspect]
     Indication: IMMUNODEFICIENCY
     Dosage: (11 G 1X/WEEK, INFUSED IN 4-5 SITES OVER 1-2 HOURS SUBCUTANEOUS), (SUBCUTANEOUS) , (SUBCUTANEOUS), (
     Route: 058
     Dates: start: 20110505
  13. HIZENTRA [Suspect]
     Indication: IMMUNODEFICIENCY
     Dosage: (11 G 1X/WEEK, INFUSED IN 4-5 SITES OVER 1-2 HOURS SUBCUTANEOUS), (SUBCUTANEOUS) , (SUBCUTANEOUS), (
     Route: 058
     Dates: start: 20110505
  14. HIZENTRA [Suspect]
     Indication: IMMUNODEFICIENCY
     Dosage: (11 G 1X/WEEK, INFUSED IN 4-5 SITES OVER 1-2 HOURS SUBCUTANEOUS), (SUBCUTANEOUS) , (SUBCUTANEOUS), (
     Route: 058
     Dates: start: 20120223, end: 20120223
  15. HIZENTRA [Suspect]
     Indication: IMMUNODEFICIENCY
     Dosage: (11 G 1X/WEEK, INFUSED IN 4-5 SITES OVER 1-2 HOURS SUBCUTANEOUS), (SUBCUTANEOUS) , (SUBCUTANEOUS), (
     Route: 058
     Dates: start: 20120223, end: 20120223
  16. HIZENTRA [Suspect]
  17. DICYCLOMINE [Concomitant]
     Indication: IMMUNODEFICIENCY
  18. KLONOPIN [Concomitant]
  19. NEURONTIN [Concomitant]
  20. ASPIRIN [Concomitant]
  21. IBUPROFEN [Concomitant]
  22. METOPROLOL TARTRATE [Concomitant]
     Indication: IMMUNODEFICIENCY
  23. CELEXA [Concomitant]
  24. BENAZEPRIL HYDROCHLORIDE [Concomitant]

REACTIONS (5)
  - INFUSION RELATED REACTION [None]
  - DYSPNOEA [None]
  - PRURITUS [None]
  - URINARY TRACT INFECTION [None]
  - HAEMATURIA [None]
